FAERS Safety Report 24848065 (Version 2)
Quarter: 2025Q1

REPORT INFORMATION
  Report Type: Report from Study
  Country: IN (occurrence: IN)
  Receive Date: 20250116
  Receipt Date: 20250221
  Transmission Date: 20250409
  Serious: Yes (Other)
  Sender: ROCHE
  Company Number: IN-ROCHE-10000173360

PATIENT
  Age: 73 Year
  Sex: Female

DRUGS (1)
  1. ACTEMRA [Suspect]
     Active Substance: TOCILIZUMAB
     Indication: Rheumatoid arthritis
     Dosage: FREQUENCY- 60
     Route: 058
     Dates: start: 20221101

REACTIONS (8)
  - Dementia Alzheimer^s type [Recovered/Resolved]
  - Urinary tract infection [Recovered/Resolved]
  - Viral infection [Recovered/Resolved]
  - Decubitus ulcer [Recovered/Resolved with Sequelae]
  - Speech disorder [Unknown]
  - Immobile [Unknown]
  - Blood sodium abnormal [Unknown]
  - General physical health deterioration [Unknown]
